FAERS Safety Report 7667116-8 (Version None)
Quarter: 2011Q3

REPORT INFORMATION
  Report Type: 
  Country: None (occurrence: None)
  Receive Date: 20110806
  Receipt Date: 20110309
  Transmission Date: 20111222
  Serious: No
  Sender: FDA-Public Use
  Company Number: US-ABBOTT-11P-163-0710170-00

PATIENT
  Sex: Female
  Weight: 118.04 kg

DRUGS (1)
  1. NIASPAN [Suspect]
     Indication: PRODUCT USED FOR UNKNOWN INDICATION
     Dosage: 1 IN 1 DAY, AT BEDTIME
     Dates: start: 20110301

REACTIONS (4)
  - SUNBURN [None]
  - ERYTHEMA [None]
  - PAIN OF SKIN [None]
  - FLUSHING [None]
